FAERS Safety Report 4923641-1 (Version None)
Quarter: 2006Q1

REPORT INFORMATION
  Report Type: 
  Country: None (occurrence: None)
  Receive Date: 20060227
  Receipt Date: 20050621
  Transmission Date: 20060701
  Serious: Yes (Hospitalization)
  Sender: FDA-Public Use
  Company Number: US-MERCK-0506USA03193

PATIENT
  Age: 54 Year
  Sex: Male
  Weight: 109 kg

DRUGS (5)
  1. VIOXX [Suspect]
     Indication: TENDONITIS
     Route: 048
     Dates: start: 20010101, end: 20040126
  2. VIOXX [Suspect]
     Indication: BACK PAIN
     Route: 048
     Dates: start: 20010101, end: 20040126
  3. ASPIRIN [Concomitant]
     Indication: PAIN
     Route: 048
     Dates: start: 19980101
  4. ZOCOR [Concomitant]
     Route: 065
  5. VICODIN [Concomitant]
     Route: 065

REACTIONS (6)
  - ANAEMIA POSTOPERATIVE [None]
  - ARTHROPATHY [None]
  - CARDIOMEGALY [None]
  - CORONARY ARTERY DISEASE [None]
  - MUSCULOSKELETAL DISCOMFORT [None]
  - MYOCARDIAL INFARCTION [None]
